FAERS Safety Report 23459723 (Version 1)
Quarter: 2024Q1

REPORT INFORMATION
  Report Type: Spontaneous
  Country: AU (occurrence: AU)
  Receive Date: 20240131
  Receipt Date: 20240131
  Transmission Date: 20240410
  Serious: Yes (Hospitalization, Other)
  Sender: FDA-Public Use
  Company Number: None

PATIENT
  Age: 71 Year
  Sex: Male

DRUGS (27)
  1. ILLUCCIX [Suspect]
     Active Substance: GALLIUM GA-68 GOZETOTIDE
     Indication: Prostate cancer metastatic
     Route: 040
     Dates: start: 20210831
  2. FLUDEOXYGLUCOSE F-18 [Suspect]
     Active Substance: FLUDEOXYGLUCOSE F-18
     Indication: Prostate cancer metastatic
     Dosage: DOSE: 250.2 MEGABECQUEREL
     Route: 042
     Dates: start: 20210902
  3. PEMBROLIZUMAB [Suspect]
     Active Substance: PEMBROLIZUMAB
     Indication: Prostate cancer metastatic
     Dosage: DOSE: 200 MILLIGRAM
     Route: 042
     Dates: start: 20211005
  4. ACAPATAMAB [Suspect]
     Active Substance: ACAPATAMAB
     Indication: Prostate cancer metastatic
     Dosage: STARTED AMG 160 AT 12:54, FLUSH FINISHED AT 14:24 HOURS
     Route: 042
     Dates: start: 20210928, end: 20210928
  5. ACAPATAMAB [Suspect]
     Active Substance: ACAPATAMAB
     Indication: Prostate cancer metastatic
     Dosage: CYCLE 1 DAY 8 (C1D8) DOSE (0.3 MG)
     Route: 042
     Dates: start: 20211005, end: 20211005
  6. DEXAMETHASONE [Concomitant]
     Active Substance: DEXAMETHASONE
     Indication: Product used for unknown indication
     Route: 048
     Dates: start: 20210928, end: 20211018
  7. IBUPROFEN [Concomitant]
     Active Substance: IBUPROFEN
     Indication: Product used for unknown indication
     Dosage: DOSE: 400 MILLIGRAM
     Route: 048
     Dates: start: 20210928
  8. LORATADINE [Concomitant]
     Active Substance: LORATADINE
     Indication: Product used for unknown indication
     Dosage: DOSE: 10 MILLIGRAM
     Route: 048
     Dates: start: 2019
  9. MAGNESIUM ASPARTATE [Concomitant]
     Active Substance: MAGNESIUM ASPARTATE
     Indication: Product used for unknown indication
     Dosage: DOSE: 1000 MILLIGRAM
     Route: 048
     Dates: start: 20210929, end: 20210930
  10. METOCLOPRAMIDE [Concomitant]
     Active Substance: METOCLOPRAMIDE
     Indication: Product used for unknown indication
     Dosage: DOSE: 10 MILLIGRAM
     Route: 048
     Dates: start: 20211005
  11. METOCLOPRAMIDE [Concomitant]
     Active Substance: METOCLOPRAMIDE
     Indication: Product used for unknown indication
     Dosage: DOSE: 10 MILLIGRAM
     Route: 048
     Dates: start: 20211005
  12. ONDANSETRON [Concomitant]
     Active Substance: ONDANSETRON
     Indication: Product used for unknown indication
     Dosage: DOSE: 8 MILLIGRAM
     Route: 048
     Dates: start: 20211006
  13. PANTOPRAZOLE [Concomitant]
     Active Substance: PANTOPRAZOLE
     Indication: Product used for unknown indication
     Dosage: DOSE: 40 MILLIGRAM
     Route: 048
     Dates: start: 2010
  14. ACETAMINOPHEN [Concomitant]
     Active Substance: ACETAMINOPHEN
     Indication: Product used for unknown indication
     Route: 048
     Dates: start: 20210928
  15. ACETAMINOPHEN [Concomitant]
     Active Substance: ACETAMINOPHEN
     Indication: Product used for unknown indication
     Route: 048
     Dates: start: 20210928
  16. ACETAMINOPHEN [Concomitant]
     Active Substance: ACETAMINOPHEN
     Indication: Product used for unknown indication
     Dosage: DOSE: 1000 MILLIGRAM FOUR TIMES A DAY
     Route: 048
     Dates: start: 20210928
  17. POTASSIUM CHLORIDE [Concomitant]
     Active Substance: POTASSIUM CHLORIDE
     Indication: Product used for unknown indication
     Route: 048
     Dates: start: 20210929, end: 20211007
  18. SIMETHICONE (DIMETHICONE) [Concomitant]
     Active Substance: DIMETHICONE
     Indication: Product used for unknown indication
     Dosage: DOSE: 100 MILLIGRAM
     Route: 048
     Dates: start: 20211006
  19. SODIUM CHLORIDE [Concomitant]
     Active Substance: SODIUM CHLORIDE
     Indication: Prophylaxis against dehydration
     Dosage: NORMAL SALINE
     Route: 042
     Dates: start: 20210928, end: 20211007
  20. TEMAZEPAM [Concomitant]
     Active Substance: TEMAZEPAM
     Indication: Product used for unknown indication
     Dosage: DOSE: 10 MILLIGRAM
     Route: 048
     Dates: start: 2010
  21. CALCIUM CHLORIDE\POTASSIUM CHLORIDE\SODIUM CHLORIDE\SODIUM LACTATE [Concomitant]
     Active Substance: CALCIUM CHLORIDE\POTASSIUM CHLORIDE\SODIUM CHLORIDE\SODIUM LACTATE
     Indication: Product used for unknown indication
     Dosage: DOSE: 500 MILLILITRE
     Route: 042
     Dates: start: 20211006, end: 20211007
  22. VITAMIN D [Concomitant]
     Active Substance: VITAMIN D NOS
     Indication: Product used for unknown indication
     Dosage: DOSE: 25 MICROGRAM
     Route: 048
     Dates: start: 2020
  23. LOPERAMIDE [Concomitant]
     Active Substance: LOPERAMIDE
     Indication: Product used for unknown indication
     Route: 065
  24. PROBIOTICS NOS [Concomitant]
     Active Substance: PROBIOTICS NOS
     Indication: Product used for unknown indication
     Route: 065
  25. Tozinameran (PFIZER BIONTECH COVID-19 VACCIN) [Concomitant]
     Indication: Product used for unknown indication
     Route: 030
     Dates: start: 20210913
  26. DEXAMETHASONE [Concomitant]
     Active Substance: DEXAMETHASONE
     Indication: Product used for unknown indication
     Dosage: EVERY 1 HOUR BOTH EYES
     Route: 047
  27. DEXAMETHASONE [Concomitant]
     Active Substance: DEXAMETHASONE
     Indication: Premedication
     Dosage: 8 MILLIGRAMS AT AROUND 12:26
     Route: 042
     Dates: start: 20210928

REACTIONS (2)
  - Uveitis [Recovered/Resolved]
  - Cytokine release syndrome [Recovered/Resolved]

NARRATIVE: CASE EVENT DATE: 20211005
